FAERS Safety Report 18224394 (Version 1)
Quarter: 2020Q3

REPORT INFORMATION
  Report Type: Report from Study
  Country: BR (occurrence: BR)
  Receive Date: 20200902
  Receipt Date: 20200902
  Transmission Date: 20201103
  Serious: Yes (Other)
  Sender: FDA-Public Use
  Company Number: NVSC2020BR241451

PATIENT
  Sex: Female

DRUGS (1)
  1. AZORGA [Suspect]
     Active Substance: BRINZOLAMIDE\TIMOLOL MALEATE
     Indication: PRODUCT USED FOR UNKNOWN INDICATION
     Dosage: ABOUT 7 YEARS AGO
     Route: 065

REACTIONS (3)
  - Hypoacusis [Unknown]
  - Photosensitivity reaction [Unknown]
  - Temperature intolerance [Unknown]
